FAERS Safety Report 5287504-7 (Version None)
Quarter: 2007Q1

REPORT INFORMATION
  Report Type: 
  Country: None (occurrence: None)
  Receive Date: 20070116
  Receipt Date: 20061003
  Transmission Date: 20070707
  Serious: No
  Sender: FDA-Public Use
  Company Number: 2006SP003516

PATIENT
  Sex: Female

DRUGS (6)
  1. LUNESTA [Suspect]
     Indication: INSOMNIA
     Dosage: 1 MG, HS, ORAL
     Route: 048
     Dates: start: 20050101
  2. TOPROL-XL [Concomitant]
  3. VALSARTAN [Concomitant]
  4. ATORVASTATIN CALCIUM [Concomitant]
  5. VITAMIN CAP [Concomitant]
  6. TYLENOL [Concomitant]

REACTIONS (3)
  - DRUG EFFECT DECREASED [None]
  - DYSGEUSIA [None]
  - HEADACHE [None]
